FAERS Safety Report 4637655-2 (Version None)
Quarter: 2005Q2

REPORT INFORMATION
  Report Type: 
  Country: None (occurrence: None)
  Receive Date: 20050418
  Receipt Date: 20050415
  Transmission Date: 20051028
  Serious: Yes (Hospitalization)
  Sender: FDA-Public Use
  Company Number: FR-GLAXOSMITHKLINE-B0378043A

PATIENT
  Age: 69 Year
  Sex: Male
  Weight: 84 kg

DRUGS (3)
  1. CLAMOXYL [Suspect]
     Dosage: 3G PER DAY
     Route: 048
     Dates: start: 20050319, end: 20050323
  2. ATENOLOL [Suspect]
     Dosage: 150MG PER DAY
     Route: 048
     Dates: start: 20031215, end: 20050323
  3. BIPRETERAX [Suspect]
     Dosage: 5.25MG PER DAY
     Route: 048
     Dates: start: 20041115, end: 20050323

REACTIONS (3)
  - ANGIONEUROTIC OEDEMA [None]
  - DYSPNOEA [None]
  - MACROGLOSSIA [None]
